FAERS Safety Report 16082820 (Version 1)
Quarter: 2019Q1

REPORT INFORMATION
  Report Type: Spontaneous
  Country: ZA (occurrence: ZA)
  Receive Date: 20190318
  Receipt Date: 20190318
  Transmission Date: 20190418
  Serious: Yes (Other)
  Sender: FDA-Public Use
  Company Number: ZA-AMGEN-ZAFSP2018133772

PATIENT
  Age: 52 Year
  Sex: Female
  Weight: 84 kg

DRUGS (1)
  1. ENBREL [Suspect]
     Active Substance: ETANERCEPT
     Indication: RHEUMATOID ARTHRITIS
     Dosage: 50 MG, WEEKLY
     Route: 058
     Dates: start: 20180908

REACTIONS (4)
  - Arthritis [Unknown]
  - Umbilical hernia [Not Recovered/Not Resolved]
  - Blood creatine increased [Unknown]
  - C-reactive protein abnormal [Unknown]

NARRATIVE: CASE EVENT DATE: 20190201
